FAERS Safety Report 7055227-X (Version None)
Quarter: 2010Q4

REPORT INFORMATION
  Report Type: 
  Country: None (occurrence: None)
  Receive Date: 20101021
  Receipt Date: 20101007
  Transmission Date: 20110411
  Serious: Yes (Other)
  Sender: FDA-Public Use
  Company Number: PHHY2010DE67120

PATIENT
  Sex: Female
  Weight: 85 kg

DRUGS (2)
  1. CGS 20267 T30748+ [Suspect]
     Indication: BREAST CANCER
     Dosage: 2.5 MG DAILY
     Route: 048
     Dates: start: 20090301
  2. RADIOTHERAPY [Concomitant]
     Dosage: UNK
     Dates: start: 20090401, end: 20090501

REACTIONS (2)
  - BREAST OPERATION [None]
  - LYMPHADENECTOMY [None]
